FAERS Safety Report 7634613-0 (Version None)
Quarter: 2011Q3

REPORT INFORMATION
  Report Type: 
  Country: None (occurrence: None)
  Receive Date: 20110725
  Receipt Date: 20110713
  Transmission Date: 20111222
  Serious: Yes (Disabling, Other)
  Sender: FDA-Public Use
  Company Number: GB-ELI_LILLY_AND_COMPANY-GB201107003452

PATIENT
  Age: 76 Year
  Sex: Male
  Weight: 91.4 kg

DRUGS (13)
  1. AMLODIPINE [Concomitant]
  2. BIMATOPROST [Concomitant]
  3. FYBOGEL MEBEVERINE [Concomitant]
  4. CIALIS [Suspect]
     Indication: ERECTILE DYSFUNCTION
     Dosage: 10 MG, UNK
     Route: 048
     Dates: start: 20090304, end: 20110627
  5. PERINDOPRIL [Concomitant]
     Dosage: 8 MG, UNK
  6. ASPIRIN [Concomitant]
  7. BISOPROLOL [Concomitant]
  8. DUTASTERIDE [Concomitant]
  9. OMEPRAZOLE [Concomitant]
  10. QUININE SULFATE [Concomitant]
     Dosage: 200 MG, UNK
  11. ALLOPURINOL [Concomitant]
  12. ATORVASTATIN [Concomitant]
  13. NITROGLYCERIN [Concomitant]

REACTIONS (1)
  - RETINAL VEIN OCCLUSION [None]
